FAERS Safety Report 9411710 (Version 1)
Quarter: 2013Q3

REPORT INFORMATION
  Report Type: Spontaneous
  Country: FR (occurrence: FR)
  Receive Date: 20130722
  Receipt Date: 20130722
  Transmission Date: 20140515
  Serious: Yes (Hospitalization, Other)
  Sender: FDA-Public Use
  Company Number: FR-JNJFOC-20130709049

PATIENT
  Sex: Female

DRUGS (4)
  1. XARELTO [Suspect]
     Indication: KNEE ARTHROPLASTY
     Route: 048
  2. XARELTO [Suspect]
     Indication: KNEE ARTHROPLASTY
     Route: 048
  3. XARELTO [Suspect]
     Indication: THROMBOSIS PROPHYLAXIS
     Route: 048
  4. XARELTO [Suspect]
     Indication: THROMBOSIS PROPHYLAXIS
     Route: 048

REACTIONS (3)
  - Deep vein thrombosis [Unknown]
  - Hypersensitivity [Unknown]
  - Drug ineffective [Unknown]
